FAERS Safety Report 11159578 (Version 1)
Quarter: 2015Q2

REPORT INFORMATION
  Report Type: Spontaneous
  Country: US (occurrence: None)
  Receive Date: 20150602
  Receipt Date: 20150602
  Transmission Date: 20150821
  Serious: No
  Sender: FDA-Public Use
  Company Number: None

PATIENT
  Age: 55 Year
  Sex: Female
  Weight: 66.68 kg

DRUGS (5)
  1. ARMOUR THYROID [Suspect]
     Active Substance: THYROID, PORCINE\THYROID, UNSPECIFIED
     Indication: HYPOTHYROIDISM
     Dosage: ONE   ONCE DAILY TAKEN BY MOUTH
     Route: 048
     Dates: start: 20150506, end: 20150601
  2. ESSENTIAL OILS. [Concomitant]
     Active Substance: ESSENTIAL OILS
  3. XANAX [Concomitant]
     Active Substance: ALPRAZOLAM
  4. WELLBUTRIN [Concomitant]
     Active Substance: BUPROPION HYDROCHLORIDE
  5. ONE A DAY VITAMINS [Concomitant]

REACTIONS (19)
  - Dyspnoea [None]
  - Feeling abnormal [None]
  - Impaired driving ability [None]
  - Fatigue [None]
  - Temperature intolerance [None]
  - Chest pain [None]
  - Diarrhoea [None]
  - Eye irritation [None]
  - Nasal discomfort [None]
  - Oropharyngeal pain [None]
  - Asthenia [None]
  - Mood altered [None]
  - Hyperhidrosis [None]
  - Nervousness [None]
  - Pyrexia [None]
  - Cold sweat [None]
  - Anxiety [None]
  - Palpitations [None]
  - Headache [None]

NARRATIVE: CASE EVENT DATE: 20150515
